FAERS Safety Report 21221413 (Version 2)
Quarter: 2022Q3

REPORT INFORMATION
  Report Type: Spontaneous
  Country: US (occurrence: US)
  Receive Date: 20220817
  Receipt Date: 20220929
  Transmission Date: 20221026
  Serious: No
  Sender: FDA-Public Use
  Company Number: US-LEO Pharma-344740

PATIENT
  Sex: Female

DRUGS (2)
  1. Civinqo [Concomitant]
     Indication: Product used for unknown indication
  2. ADBRY [Suspect]
     Active Substance: TRALOKINUMAB-LDRM
     Indication: Dermatitis atopic

REACTIONS (3)
  - Erythema [Unknown]
  - Pruritus [Unknown]
  - Drug ineffective [Unknown]
